FAERS Safety Report 4522600-0 (Version None)
Quarter: 2004Q4

REPORT INFORMATION
  Report Type: 
  Country: None (occurrence: None)
  Receive Date: 20041207
  Receipt Date: 20041124
  Transmission Date: 20050328
  Serious: Yes (Other)
  Sender: FDA-Public Use
  Company Number: 2004099636

PATIENT
  Age: 60 Year
  Sex: Female
  Weight: 68.0396 kg

DRUGS (3)
  1. CETIRIZINE HCL [Suspect]
     Indication: PRURITUS
     Dates: start: 19970101
  2. BENADRYL [Suspect]
     Indication: PRURITUS
  3. BENADRYL [Suspect]
     Indication: PRURITUS

REACTIONS (3)
  - DRUG INEFFECTIVE [None]
  - FEAR [None]
  - URTICARIA [None]
